FAERS Safety Report 8472404-1 (Version None)
Quarter: 2012Q2

REPORT INFORMATION
  Report Type: 
  Country: None (occurrence: None)
  Receive Date: 20120627
  Receipt Date: 20110801
  Transmission Date: 20120825
  Serious: No
  Sender: FDA-Public Use
  Company Number: US-AMGEN-USASP2011039367

PATIENT
  Age: 58 Year
  Sex: Female
  Weight: 72.562 kg

DRUGS (1)
  1. PROCRIT [Suspect]
     Indication: ANAEMIA
     Dosage: 40000 UNIT, QOD
     Route: 042
     Dates: start: 20060101, end: 20060101

REACTIONS (1)
  - INSOMNIA [None]
